FAERS Safety Report 20198417 (Version 1)
Quarter: 2021Q4

REPORT INFORMATION
  Report Type: Spontaneous
  Country: US (occurrence: None)
  Receive Date: 20211216
  Receipt Date: 20211216
  Transmission Date: 20220303
  Serious: Yes (Hospitalization)
  Sender: FDA-Public Use
  Company Number: None

PATIENT
  Sex: Female

DRUGS (1)
  1. COPAXONE [Suspect]
     Active Substance: GLATIRAMER ACETATE
     Indication: Multiple sclerosis
     Dosage: FREQUENCY : 3 TIMES A WEEK;?
     Route: 058
     Dates: start: 20080115

REACTIONS (8)
  - Mental status changes [None]
  - Loss of consciousness [None]
  - Cystitis [None]
  - Diarrhoea [None]
  - Decreased appetite [None]
  - Weight decreased [None]
  - Pollakiuria [None]
  - Bladder prolapse [None]
